FAERS Safety Report 19945260 (Version 1)
Quarter: 2021Q4

REPORT INFORMATION
  Report Type: Spontaneous
  Country: GB (occurrence: GB)
  Receive Date: 20211011
  Receipt Date: 20211011
  Transmission Date: 20220303
  Serious: Yes (Life-Threatening, Hospitalization, Congenital Anomaly, Other)
  Sender: FDA-Public Use
  Company Number: None

PATIENT
  Age: 31 Year
  Sex: Female
  Weight: 51 kg

DRUGS (13)
  1. SEVOFLURANE [Suspect]
     Active Substance: SEVOFLURANE
     Indication: Anaesthetic complication
     Dosage: 1.5-3%
     Route: 055
     Dates: start: 20210929, end: 20210929
  2. SEVOFLURANE [Suspect]
     Active Substance: SEVOFLURANE
     Indication: Elective surgery
     Dosage: DOSE RE-INTRODUCED
     Route: 055
  3. SEVOFLURANE [Suspect]
     Active Substance: SEVOFLURANE
     Indication: Nasal septal operation
  4. SEVOFLURANE [Suspect]
     Active Substance: SEVOFLURANE
     Indication: Maintenance of anaesthesia
  5. PROPOFOL [Suspect]
     Active Substance: PROPOFOL
     Indication: Elective surgery
     Route: 065
     Dates: start: 20210929
  6. PROPOFOL [Suspect]
     Active Substance: PROPOFOL
     Indication: Nasal septal operation
  7. ATRACURIUM [Suspect]
     Active Substance: ATRACURIUM
     Indication: Elective surgery
     Route: 065
     Dates: start: 20210929
  8. ATRACURIUM [Suspect]
     Active Substance: ATRACURIUM
     Indication: Nasal septal operation
  9. ALFENTANIL [Suspect]
     Active Substance: ALFENTANIL
     Indication: Elective surgery
     Route: 065
     Dates: start: 20210929
  10. ALFENTANIL [Suspect]
     Active Substance: ALFENTANIL
     Indication: Nasal septal operation
  11. MORPHINE [Suspect]
     Active Substance: MORPHINE
     Indication: Elective surgery
     Route: 065
     Dates: start: 20210929
  12. MORPHINE [Suspect]
     Active Substance: MORPHINE
     Indication: Nasal septal operation
  13. MORPHINE [Suspect]
     Active Substance: MORPHINE
     Indication: Maintenance of anaesthesia

REACTIONS (4)
  - Hyperthermia malignant [Recovering/Resolving]
  - End-tidal CO2 increased [Unknown]
  - Blood potassium increased [Unknown]
  - Acidosis [Unknown]

NARRATIVE: CASE EVENT DATE: 20210929
